FAERS Safety Report 9036750 (Version 1)
Quarter: 2013Q1

REPORT INFORMATION
  Report Type: Report from Study
  Country: US (occurrence: US)
  Receive Date: 20130129
  Receipt Date: 20130129
  Transmission Date: 20140127
  Serious: No
  Sender: FDA-Public Use
  Company Number: US-ABBOTT-12P-163-0890245-00

PATIENT
  Age: 47 Year
  Sex: Female
  Weight: 111.68 kg

DRUGS (11)
  1. HUMIRA 40 MG/0.8 ML PEN [Suspect]
     Indication: CROHN^S DISEASE
     Dates: start: 20111021, end: 20111221
  2. BYETTA [Concomitant]
     Indication: DIABETES MELLITUS
  3. AMARYL [Concomitant]
     Indication: DIABETES MELLITUS
     Dosage: DAILY
  4. LEVOXYL [Concomitant]
     Indication: HYPOTHYROIDISM
  5. FOLIC ACID [Concomitant]
     Indication: SUPPLEMENTATION THERAPY
     Dosage: DAILY
  6. MULTIVITAMINS [Concomitant]
     Indication: PRODUCT USED FOR UNKNOWN INDICATION
     Dosage: DAILY
  7. VITAMIN D [Concomitant]
     Indication: SUPPLEMENTATION THERAPY
     Dosage: DAILY
  8. REGLAN [Concomitant]
     Indication: ABDOMINAL PAIN UPPER
     Dosage: AS REQUIRED
  9. SILVADENE [Concomitant]
     Indication: SKIN ULCER
  10. PERCOCET [Concomitant]
     Indication: ULCER
  11. ZOLPIDEM [Concomitant]
     Indication: SLEEP DISORDER THERAPY

REACTIONS (8)
  - Rotator cuff syndrome [Unknown]
  - Nausea [Recovered/Resolved]
  - Pain [Recovering/Resolving]
  - Stomatitis [Recovering/Resolving]
  - Drug ineffective [Recovering/Resolving]
  - Bursitis [Recovering/Resolving]
  - Osteoarthritis [Recovering/Resolving]
  - Skin ulcer [Unknown]
